FAERS Safety Report 23777124 (Version 1)
Quarter: 2024Q2

REPORT INFORMATION
  Report Type: Spontaneous
  Country: CH (occurrence: CH)
  Receive Date: 20240424
  Receipt Date: 20240424
  Transmission Date: 20240716
  Serious: Yes (Other)
  Sender: FDA-Public Use
  Company Number: CH-BRISTOL-MYERS SQUIBB COMPANY-2024-062878

PATIENT
  Age: 61 Year
  Sex: Female

DRUGS (1)
  1. OPDIVO [Suspect]
     Active Substance: NIVOLUMAB
     Indication: Malignant melanoma
     Dosage: DOSE : 240 MG;  FREQ : 5 INFUSIONS BETWEEN NOV/2023-JAN/2024
     Route: 042
     Dates: start: 202311, end: 202401

REACTIONS (11)
  - Hilar lymphadenopathy [Unknown]
  - Lymphadenopathy mediastinal [Unknown]
  - Sarcoid-like reaction [Unknown]
  - Erythema [Unknown]
  - Erysipelas [Unknown]
  - Cutaneous vasculitis [Unknown]
  - Cough [Unknown]
  - Erythema nodosum [Unknown]
  - Panniculitis [Unknown]
  - Dermatosis [Unknown]
  - Loefgren syndrome [Unknown]

NARRATIVE: CASE EVENT DATE: 20240108
